FAERS Safety Report 6242320-4 (Version None)
Quarter: 2009Q2

REPORT INFORMATION
  Report Type: 
  Country: None (occurrence: None)
  Receive Date: 20090624
  Receipt Date: 20090617
  Transmission Date: 20091009
  Serious: Yes (Hospitalization)
  Sender: FDA-Public Use
  Company Number: US-BIOGENIDEC-2006BI018905

PATIENT
  Age: 45 Year
  Sex: Female
  Weight: 117 kg

DRUGS (18)
  1. TYSABRI [Suspect]
     Indication: MULTIPLE SCLEROSIS
     Route: 042
     Dates: start: 20061120
  2. FLEXERIL [Concomitant]
  3. TRILEPTAL [Concomitant]
  4. LYRICA [Concomitant]
  5. ULTRAM [Concomitant]
  6. XANAX [Concomitant]
  7. COLACE [Concomitant]
  8. ACIPHEX [Concomitant]
  9. SYNTHROID [Concomitant]
  10. WELLBUTRIN SR [Concomitant]
  11. LEXAPRO [Concomitant]
  12. ZELNORM [Concomitant]
  13. FOLIC ACID [Concomitant]
  14. MULTI-VITAMIN [Concomitant]
  15. POTASSIUM CHLORIDE [Concomitant]
     Indication: BLOOD POTASSIUM DECREASED
  16. IRON [Concomitant]
  17. THYROLAR [Concomitant]
  18. DIURETIC [Concomitant]
     Indication: SWELLING

REACTIONS (8)
  - BLOOD BILIRUBIN INCREASED [None]
  - FALL [None]
  - FIBULA FRACTURE [None]
  - HYPOKALAEMIA [None]
  - JAUNDICE [None]
  - LOWER LIMB FRACTURE [None]
  - MULTIPLE SCLEROSIS [None]
  - TOOTH ABSCESS [None]
